FAERS Safety Report 11938049 (Version 3)
Quarter: 2019Q2

REPORT INFORMATION
  Report Type: Spontaneous
  Country: FR (occurrence: FR)
  Receive Date: 20160122
  Receipt Date: 20190412
  Transmission Date: 20190711
  Serious: Yes (Hospitalization)
  Sender: FDA-Public Use
  Company Number: FR-009507513-1601FRA007672

PATIENT
  Age: 85 Year
  Sex: Female

DRUGS (6)
  1. TAVANIC [Concomitant]
     Active Substance: LEVOFLOXACIN
     Dosage: 0.5 DF, QD
     Route: 048
     Dates: start: 20151202
  2. CUBICIN [Suspect]
     Active Substance: DAPTOMYCIN
     Dosage: 350 MG, QD
     Route: 042
     Dates: start: 20151202, end: 20151208
  3. CALCIPARINE [Concomitant]
     Active Substance: HEPARIN CALCIUM
     Dosage: 0.2 ML (CONCENTRATION 12 500 IU/ML), BID
     Route: 058
     Dates: start: 20151202
  4. LEVEMIR [Concomitant]
     Active Substance: INSULIN DETEMIR
     Dosage: 12 IU, QD
     Route: 058
     Dates: start: 20151202
  5. BISOCE [Concomitant]
     Active Substance: BISOPROLOL
     Dosage: 1 DF, QD
     Route: 048
     Dates: start: 20151202
  6. LOXEN [Concomitant]
     Dosage: 1 DF, QD
     Route: 048
     Dates: start: 20151202

REACTIONS (4)
  - Vomiting [Recovered/Resolved]
  - Nausea [Recovered/Resolved]
  - Dizziness [Recovered/Resolved]
  - Pain [Not Recovered/Not Resolved]

NARRATIVE: CASE EVENT DATE: 20151206
